FAERS Safety Report 4510672-9 (Version None)
Quarter: 2004Q4

REPORT INFORMATION
  Report Type: 
  Country: None (occurrence: None)
  Receive Date: 20041123
  Receipt Date: 20041021
  Transmission Date: 20050328
  Serious: Yes (Death)
  Sender: FDA-Public Use
  Company Number: CIO04022794

PATIENT
  Age: 42 Year
  Sex: Female

DRUGS (2)
  1. NYQUIL (SEE IMAGE) [Suspect]
     Dosage: ORAL
     Route: 048
  2. UNISOM SLEEPGEL (DIPHENHYDRAMINE HYDROCHLORIDE) [Suspect]
     Dosage: ORAL
     Route: 048

REACTIONS (2)
  - COMPLETED SUICIDE [None]
  - MULTIPLE DRUG OVERDOSE [None]
